FAERS Safety Report 17487520 (Version 2)
Quarter: 2020Q1

REPORT INFORMATION
  Report Type: Report from Study
  Country: CA (occurrence: CA)
  Receive Date: 20200303
  Receipt Date: 20200312
  Transmission Date: 20200409
  Serious: Yes (Other)
  Sender: FDA-Public Use
  Company Number: CA-TAKEDA-2019TUS047455

PATIENT
  Age: 35 Year
  Sex: Female

DRUGS (4)
  1. VEDOLIZUMAB [Suspect]
     Active Substance: VEDOLIZUMAB
     Indication: COLITIS ULCERATIVE
     Dosage: 300 MILLIGRAM
     Route: 042
     Dates: start: 20181203
  2. MEZAVANT [Concomitant]
     Active Substance: MESALAMINE
     Dosage: 4.8 GRAM, QD
  3. VEDOLIZUMAB [Suspect]
     Active Substance: VEDOLIZUMAB
     Dosage: 300 MILLIGRAM, Q4WEEKS
     Route: 042
     Dates: start: 20190412
  4. VEDOLIZUMAB [Suspect]
     Active Substance: VEDOLIZUMAB
     Dosage: 300 MILLIGRAM, Q4WEEKS
     Route: 042

REACTIONS (8)
  - Fibromyalgia [Unknown]
  - Musculoskeletal discomfort [Recovered/Resolved]
  - Pain in jaw [Recovered/Resolved]
  - Pain in extremity [Recovered/Resolved]
  - Renal neoplasm [Unknown]
  - Paraesthesia [Recovered/Resolved]
  - Chest discomfort [Recovered/Resolved]
  - Off label use [Unknown]

NARRATIVE: CASE EVENT DATE: 20190412
